FAERS Safety Report 23686934 (Version 2)
Quarter: 2024Q2

REPORT INFORMATION
  Report Type: Spontaneous
  Country: CA (occurrence: CA)
  Receive Date: 20240329
  Receipt Date: 20240422
  Transmission Date: 20240715
  Serious: Yes (Other)
  Sender: FDA-Public Use
  Company Number: CA-BAYER-2024A044267

PATIENT
  Age: 56 Year
  Sex: Male

DRUGS (1)
  1. KERENDIA [Suspect]
     Active Substance: FINERENONE
     Dosage: 10 MG
     Dates: start: 20240124, end: 20240321

REACTIONS (4)
  - Nephrolithiasis [Not Recovered/Not Resolved]
  - Glomerular filtration rate decreased [None]
  - Pain [Recovering/Resolving]
  - Discomfort [Recovering/Resolving]

NARRATIVE: CASE EVENT DATE: 20240101
